FAERS Safety Report 24967658 (Version 2)
Quarter: 2025Q3

REPORT INFORMATION
  Report Type: Spontaneous
  Country: CH (occurrence: CH)
  Receive Date: 20250214
  Receipt Date: 20250809
  Transmission Date: 20251020
  Serious: Yes (Hospitalization, Other)
  Sender: ALEXION PHARMACEUTICALS
  Company Number: None

PATIENT
  Age: 46 Year
  Sex: Male

DRUGS (13)
  1. QUETIAPINE FUMARATE [Suspect]
     Active Substance: QUETIAPINE FUMARATE
     Dosage: 50 MILLIGRAM, QD
  2. Redormin [Concomitant]
  3. THIAMINE HYDROCHLORIDE [Concomitant]
     Active Substance: THIAMINE HYDROCHLORIDE
  4. CYMBALTA [Concomitant]
     Active Substance: DULOXETINE HYDROCHLORIDE
  5. Enalapril helvepharm [Concomitant]
     Route: 065
  6. Inflamac 75 retard [Concomitant]
  7. CARBOMER [Concomitant]
     Active Substance: CARBOMER
     Route: 065
  8. Tamsulosin axapharm [Concomitant]
  9. TRAZODONE HYDROCHLORIDE [Concomitant]
     Active Substance: TRAZODONE HYDROCHLORIDE
  10. TRAZODONE HYDROCHLORIDE [Concomitant]
     Active Substance: TRAZODONE HYDROCHLORIDE
  11. VITAMINS [Concomitant]
     Active Substance: VITAMINS
  12. XARELTO [Concomitant]
     Active Substance: RIVAROXABAN
  13. Zolpidem cr zentiva [Concomitant]

REACTIONS (3)
  - Toxicity to various agents [Unknown]
  - Altered state of consciousness [Recovering/Resolving]
  - Electrocardiogram QT prolonged [Unknown]

NARRATIVE: CASE EVENT DATE: 20231225
